FAERS Safety Report 17264979 (Version 2)
Quarter: 2020Q1

REPORT INFORMATION
  Report Type: Report from Study
  Country: US (occurrence: US)
  Receive Date: 20200113
  Receipt Date: 20200304
  Transmission Date: 20200409
  Serious: Yes (Hospitalization)
  Sender: FDA-Public Use
  Company Number: US-ACTELION-A-US2020-200351

PATIENT
  Age: 57 Year
  Sex: Female

DRUGS (1)
  1. OPSUMIT [Suspect]
     Active Substance: MACITENTAN
     Indication: PORTAL HYPERTENSION
     Dosage: 10 MG, QD
     Route: 048
     Dates: start: 201912

REACTIONS (4)
  - Hospitalisation [Not Recovered/Not Resolved]
  - Chest pain [Unknown]
  - Adverse event [Unknown]
  - Dyspnoea [Unknown]

NARRATIVE: CASE EVENT DATE: 20191217
